FAERS Safety Report 19433985 (Version 1)
Quarter: 2021Q2

REPORT INFORMATION
  Report Type: Spontaneous
  Country: US (occurrence: US)
  Receive Date: 20210618
  Receipt Date: 20210618
  Transmission Date: 20210717
  Serious: No
  Sender: FDA-Public Use
  Company Number: US-PFIZER INC-2021321239

PATIENT
  Age: 55 Year
  Sex: Female
  Weight: 75.8 kg

DRUGS (1)
  1. IBRANCE [Suspect]
     Active Substance: PALBOCICLIB
     Dosage: 125 MG

REACTIONS (3)
  - Pain [Recovering/Resolving]
  - Urinary tract infection [Unknown]
  - Dysuria [Unknown]
